FAERS Safety Report 8009130-9 (Version None)
Quarter: 2011Q4

REPORT INFORMATION
  Report Type: 
  Country: None (occurrence: None)
  Receive Date: 20111227
  Receipt Date: 20111216
  Transmission Date: 20120403
  Serious: Yes (Hospitalization, Other)
  Sender: FDA-Public Use
  Company Number: US-ELI_LILLY_AND_COMPANY-US201112004822

PATIENT
  Age: 48 Year
  Sex: Male

DRUGS (3)
  1. HUMULIN R [Suspect]
     Dosage: UNK, UNKNOWN
  2. HUMULIN R [Suspect]
     Dosage: UNK, UNKNOWN
  3. LEVEMIR [Concomitant]

REACTIONS (4)
  - ULCER [None]
  - WRONG DRUG ADMINISTERED [None]
  - PARAPLEGIA [None]
  - SOMNOLENCE [None]
